FAERS Safety Report 23763838 (Version 1)
Quarter: 2024Q2

REPORT INFORMATION
  Report Type: Spontaneous
  Country: US (occurrence: US)
  Receive Date: 20240419
  Receipt Date: 20240419
  Transmission Date: 20240716
  Serious: No
  Sender: FDA-Public Use
  Company Number: US-GALDERMA-US2024001361

PATIENT

DRUGS (14)
  1. PROACTIV MD ADAPALENE ACNE TREATMENT [Suspect]
     Active Substance: ADAPALENE
     Indication: Scar
     Dosage: 1 DOSAGE FORM, QD
     Route: 061
     Dates: start: 202401, end: 202401
  2. PROACTIV MD ADAPALENE ACNE TREATMENT [Suspect]
     Active Substance: ADAPALENE
     Indication: Skin hyperpigmentation
  3. Proactiv MD Ultra Gentle Cleanser [Concomitant]
     Indication: Scar
     Dosage: 1 DOSAGE FORM, BID
     Route: 061
     Dates: start: 202401, end: 202401
  4. Proactiv MD Ultra Gentle Cleanser [Concomitant]
     Indication: Skin hyperpigmentation
  5. Proactiv MD Ultra Hydrating Moisturizer [Concomitant]
     Indication: Scar
     Dosage: 1 DOSAGE FORM, BID
     Route: 061
     Dates: start: 202401, end: 202401
  6. Proactiv MD Ultra Hydrating Moisturizer [Concomitant]
     Indication: Skin hyperpigmentation
  7. COSMETICS [Concomitant]
     Active Substance: COSMETICS
     Indication: Scar
     Dosage: 1 DOSAGE FORM, BID
     Route: 061
     Dates: start: 202401, end: 202401
  8. COSMETICS [Concomitant]
     Active Substance: COSMETICS
     Indication: Skin hyperpigmentation
  9. COSMETICS [Concomitant]
     Active Substance: COSMETICS
     Indication: Scar
     Dosage: 1 DOSAGE FORM, BID
     Route: 061
     Dates: start: 202401, end: 202401
  10. COSMETICS [Concomitant]
     Active Substance: COSMETICS
     Indication: Skin hyperpigmentation
  11. PROACTIV EMERGENCY BLEMISH RELIEF [Concomitant]
     Active Substance: BENZOYL PEROXIDE
     Indication: Scar
     Dosage: 1 DOSAGE FORM, BID
     Route: 061
     Dates: start: 202401, end: 202401
  12. PROACTIV EMERGENCY BLEMISH RELIEF [Concomitant]
     Active Substance: BENZOYL PEROXIDE
     Indication: Skin hyperpigmentation
  13. Proactiv Zits Happen Patches [Concomitant]
     Indication: Scar
     Dosage: 1 DOSAGE FORM, BID
     Route: 061
     Dates: start: 202401, end: 202401
  14. Proactiv Zits Happen Patches [Concomitant]
     Indication: Skin hyperpigmentation

REACTIONS (4)
  - Acne [Recovering/Resolving]
  - Dry skin [Recovering/Resolving]
  - Skin burning sensation [Recovering/Resolving]
  - Product use in unapproved indication [Recovered/Resolved]

NARRATIVE: CASE EVENT DATE: 20240101
